FAERS Safety Report 5946237-1 (Version None)
Quarter: 2008Q4

REPORT INFORMATION
  Report Type: 
  Country: None (occurrence: None)
  Receive Date: 20081110
  Receipt Date: 20081027
  Transmission Date: 20090506
  Serious: Yes (Hospitalization, Other)
  Sender: FDA-Public Use
  Company Number: AU-ROCHE-593656

PATIENT
  Age: 44 Year
  Sex: Male

DRUGS (7)
  1. MYCOPHENOLATE MOFETIL [Suspect]
     Route: 065
  2. MYCOPHENOLATE MOFETIL [Suspect]
     Dosage: REINSTITUTION
     Route: 065
  3. PREDNISONE TAB [Suspect]
     Route: 065
  4. PREDNISONE TAB [Suspect]
     Dosage: REINSTITUTION
     Route: 065
  5. PREDNISONE TAB [Suspect]
     Route: 065
  6. AZATHIOPRINE [Suspect]
     Route: 065
  7. CYCLOSPORINE [Suspect]
     Route: 065

REACTIONS (4)
  - CITROBACTER SEPSIS [None]
  - NO THERAPEUTIC RESPONSE [None]
  - PEMPHIGUS [None]
  - STAPHYLOCOCCAL INFECTION [None]
